FAERS Safety Report 17296899 (Version 2)
Quarter: 2022Q3

REPORT INFORMATION
  Report Type: Spontaneous
  Country: US (occurrence: US)
  Receive Date: 20200122
  Receipt Date: 20220715
  Transmission Date: 20221026
  Serious: Yes (Other)
  Sender: FDA-Public Use
  Company Number: US-CELLTRION INC.-2019US021889

PATIENT

DRUGS (3)
  1. INFLECTRA [Suspect]
     Active Substance: INFLIXIMAB-DYYB
     Indication: Crohn^s disease
     Dosage: 10 MG/KG EVERY 6 WEEKS
     Route: 065
     Dates: start: 201805
  2. INFLECTRA [Suspect]
     Active Substance: INFLIXIMAB-DYYB
     Dosage: 10MG/KG INFUSION INTRAVENOUSLY EVERY 6 WEEKS
     Route: 042
     Dates: start: 20180305
  3. INFLECTRA [Suspect]
     Active Substance: INFLIXIMAB-DYYB
     Dosage: 7.5 MG/KG
     Route: 042

REACTIONS (6)
  - Weight increased [Unknown]
  - Product dose omission issue [Unknown]
  - Illness [Unknown]
  - Drug ineffective [Unknown]
  - Off label use [Unknown]
  - Overdose [Unknown]
